FAERS Safety Report 9133702 (Version 1)
Quarter: 2013Q1

REPORT INFORMATION
  Report Type: Spontaneous
  Country: US (occurrence: US)
  Receive Date: 20130303
  Receipt Date: 20130303
  Transmission Date: 20140127
  Serious: No
  Sender: FDA-Public Use
  Company Number: US-TEVA-388420USA

PATIENT
  Sex: Female
  Weight: 90.35 kg

DRUGS (3)
  1. PROAIR HFA [Suspect]
     Indication: ASTHMA
     Dosage: 1-2 PUFFS Q 4-6 H PRN
     Route: 055
     Dates: start: 200909
  2. TYLENOL [Concomitant]
     Indication: MIGRAINE
     Dosage: PRN
     Route: 048
  3. IBUPROFEN [Concomitant]
     Indication: MIGRAINE
     Dosage: PRN
     Route: 048

REACTIONS (2)
  - Pregnancy [Unknown]
  - Alopecia [Not Recovered/Not Resolved]
